FAERS Safety Report 12133021 (Version 1)
Quarter: 2016Q1

REPORT INFORMATION
  Report Type: Spontaneous
  Country: US (occurrence: None)
  Receive Date: 20160229
  Receipt Date: 20160229
  Transmission Date: 20160526
  Serious: Yes (Other)
  Sender: FDA-Public Use
  Company Number: None

PATIENT
  Age: 17 Year
  Sex: Female
  Weight: 79.38 kg

DRUGS (1)
  1. DEPO-PROVERA [Suspect]
     Active Substance: MEDROXYPROGESTERONE ACETATE
     Dosage: 1 Q 3 MONTHS INTO THE MUSCLE
     Route: 030
     Dates: start: 20160204

REACTIONS (1)
  - Seizure [None]

NARRATIVE: CASE EVENT DATE: 20160207
